FAERS Safety Report 6610283-5 (Version None)
Quarter: 2010Q1

REPORT INFORMATION
  Report Type: 
  Country: None (occurrence: None)
  Receive Date: 20100216
  Receipt Date: 20090930
  Transmission Date: 20100710
  Serious: Yes (Other)
  Sender: FDA-Public Use
  Company Number: MC200900373

PATIENT
  Age: 95 Year
  Sex: Female

DRUGS (1)
  1. ANGIOMAX [Suspect]
     Dosage: RENAL DOSE, INTRAVENOUS
     Route: 042
     Dates: start: 20090901

REACTIONS (1)
  - COAGULATION TIME ABNORMAL [None]
